FAERS Safety Report 20601356 (Version 1)
Quarter: 2022Q1

REPORT INFORMATION
  Report Type: Spontaneous
  Country: US (occurrence: None)
  Receive Date: 20220315
  Receipt Date: 20220315
  Transmission Date: 20220424
  Serious: Yes (Hospitalization)
  Sender: FDA-Public Use
  Company Number: None

PATIENT
  Age: 62 Year
  Sex: Male

DRUGS (14)
  1. TESTOPEL [Suspect]
     Active Substance: TESTOSTERONE
     Indication: Testicular failure
     Dosage: FREQUENCY : AS DIRECTED;?IMPLANT 8 PELLETS  UNDER THE SKIN (SUBCUTANEOUS INJECTION) PER OFFICE VISIT
     Route: 058
     Dates: start: 20170712
  2. ABILIFY TAB [Concomitant]
  3. ADVAIR DISKUS AER [Concomitant]
  4. CLONAZEPAM [Concomitant]
     Active Substance: CLONAZEPAM
  5. CYMBALTA CAP 30MG [Concomitant]
  6. CYMBALTA CAP 60MG [Concomitant]
  7. LAMICTAL TAB [Concomitant]
  8. LIPITOR TAB [Concomitant]
  9. LOSARTAN POT TAB [Concomitant]
  10. LYRICA CAP [Concomitant]
  11. PREGABALIN POW [Concomitant]
  12. TRAZODONE TAB [Concomitant]
  13. DEVICE [Concomitant]
     Active Substance: DEVICE
  14. WELLBUTRIN TAB XL [Concomitant]

REACTIONS (1)
  - Hernia repair [None]

NARRATIVE: CASE EVENT DATE: 20220315
